FAERS Safety Report 9147016 (Version 1)
Quarter: 2013Q1

REPORT INFORMATION
  Report Type: Spontaneous
  Country: FR (occurrence: FR)
  Receive Date: 20130307
  Receipt Date: 20130307
  Transmission Date: 20140127
  Serious: Yes (Other)
  Sender: FDA-Public Use
  Company Number: FR-ELI_LILLY_AND_COMPANY-FR201303000754

PATIENT
  Age: 69 Year
  Sex: Male

DRUGS (2)
  1. CIALIS [Suspect]
     Dosage: 1 DF, UNKNOWN
  2. PREVISCAN [Concomitant]
     Dosage: 1 DF, UNKNOWN

REACTIONS (1)
  - International normalised ratio increased [Unknown]
